FAERS Safety Report 8262190-2 (Version None)
Quarter: 2012Q2

REPORT INFORMATION
  Report Type: 
  Country: None (occurrence: None)
  Receive Date: 20120405
  Receipt Date: 20120401
  Transmission Date: 20120825
  Serious: Yes (Other)
  Sender: FDA-Public Use
  Company Number: US-AMGEN-USASP2012015643

PATIENT
  Age: 41 Year
  Sex: Female

DRUGS (2)
  1. ENBREL [Suspect]
     Indication: ANKYLOSING SPONDYLITIS
  2. ENBREL [Suspect]
     Indication: RHEUMATOID ARTHRITIS
     Dosage: 50 MG, QWK
     Route: 058
     Dates: start: 20021201

REACTIONS (29)
  - RHEUMATOID ARTHRITIS [None]
  - MALAISE [None]
  - INFLAMMATION [None]
  - ABDOMINAL DISTENSION [None]
  - BOWEL MOVEMENT IRREGULARITY [None]
  - CONSTIPATION [None]
  - MUSCULOSKELETAL STIFFNESS [None]
  - BACTERIAL INFECTION [None]
  - IRITIS [None]
  - DYSPEPSIA [None]
  - ANKYLOSING SPONDYLITIS [None]
  - ANXIETY [None]
  - CONNECTIVE TISSUE DISORDER [None]
  - FATIGUE [None]
  - EYE PAIN [None]
  - SINUS CONGESTION [None]
  - ARTHRALGIA [None]
  - SEASONAL ALLERGY [None]
  - PAIN [None]
  - DRUG INEFFECTIVE [None]
  - FIBROMYALGIA [None]
  - FLATULENCE [None]
  - NERVOUS SYSTEM DISORDER [None]
  - DEPRESSION [None]
  - EYE DISORDER [None]
  - LACRIMATION INCREASED [None]
  - RED BLOOD CELL SEDIMENTATION RATE ABNORMAL [None]
  - ENDOMETRIOSIS [None]
  - MUSCULAR WEAKNESS [None]
